FAERS Safety Report 7370383-1 (Version None)
Quarter: 2011Q1

REPORT INFORMATION
  Report Type: 
  Country: None (occurrence: None)
  Receive Date: 20110323
  Receipt Date: 20110318
  Transmission Date: 20110831
  Serious: Yes (Hospitalization)
  Sender: FDA-Public Use
  Company Number: KR-B.I. PHARMACEUTICALS,INC./RIDGEFIELD-2011-CS-00183RK

PATIENT
  Sex: Female
  Weight: 62 kg

DRUGS (8)
  1. LINAGLIPTIN [Suspect]
     Indication: TYPE 2 DIABETES MELLITUS
     Route: 048
     Dates: start: 20100225
  2. HUMULIN N [Concomitant]
     Indication: DIABETES MELLITUS
     Dosage: 16 U
     Route: 058
     Dates: start: 20080806
  3. ASPIRIN [Concomitant]
     Indication: THROMBOSIS PROPHYLAXIS
     Dosage: 100 MG
     Route: 048
     Dates: start: 20060417
  4. TELMISARTAN [Concomitant]
     Indication: HYPERTENSION
     Dosage: 40 MG
     Route: 048
     Dates: start: 20051017
  5. NEBIVOLOL HCL [Concomitant]
     Indication: HYPERTENSION
     Dosage: 5 MG
     Route: 048
     Dates: start: 20100720
  6. NIFERON CR [Concomitant]
     Indication: HYPERTENSION
     Dosage: 40 MG
     Route: 048
     Dates: start: 20061226
  7. METFORMIN HCL [Concomitant]
     Indication: DIABETES MELLITUS
     Dosage: 1500 MG
     Route: 048
     Dates: start: 20051227
  8. PREGREL [Concomitant]
     Indication: THROMBOSIS PROPHYLAXIS
     Dosage: 75 MG
     Route: 048
     Dates: start: 20091125

REACTIONS (1)
  - ANGINA PECTORIS [None]
